FAERS Safety Report 22068673 (Version 13)
Quarter: 2025Q1

REPORT INFORMATION
  Report Type: Spontaneous
  Country: US (occurrence: US)
  Receive Date: 20230307
  Receipt Date: 20250109
  Transmission Date: 20250408
  Serious: Yes (Hospitalization)
  Sender: DAIICHI
  Company Number: US-DSJP-DSU-2023-108790AA

PATIENT
  Sex: Female
  Weight: 85 kg

DRUGS (4)
  1. TURALIO [Suspect]
     Active Substance: PEXIDARTINIB HYDROCHLORIDE
     Indication: Giant cell tumour of tendon sheath
     Dosage: 250 MG, BID
     Route: 048
     Dates: start: 20230208, end: 20230220
  2. TURALIO [Suspect]
     Active Substance: PEXIDARTINIB HYDROCHLORIDE
     Indication: Synovitis
     Dosage: 400 MG, BID
     Route: 048
     Dates: start: 20230220
  3. TURALIO [Suspect]
     Active Substance: PEXIDARTINIB HYDROCHLORIDE
     Dosage: 400 MG, BID
     Route: 048
  4. TURALIO [Suspect]
     Active Substance: PEXIDARTINIB HYDROCHLORIDE
     Dosage: 250 MG, BID
     Route: 048
     Dates: start: 20230726

REACTIONS (32)
  - Memory impairment [Recovered/Resolved]
  - Nausea [Recovered/Resolved]
  - Feeling abnormal [Recovered/Resolved]
  - Pain in extremity [Recovered/Resolved]
  - Neoplasm [Not Recovered/Not Resolved]
  - Pyrexia [Recovered/Resolved]
  - Fatigue [Recovered/Resolved]
  - Fatigue [Recovered/Resolved]
  - Malaise [Unknown]
  - Hair colour changes [Unknown]
  - Myalgia [Unknown]
  - Influenza like illness [Unknown]
  - Oropharyngeal pain [Recovering/Resolving]
  - Nasal congestion [Unknown]
  - Nausea [Unknown]
  - Tonsillar inflammation [Recovered/Resolved]
  - Pain [Recovered/Resolved]
  - Anaemia [Recovered/Resolved]
  - Illness [Not Recovered/Not Resolved]
  - Influenza like illness [Not Recovered/Not Resolved]
  - Fatigue [Not Recovered/Not Resolved]
  - Weight decreased [Unknown]
  - Chills [Not Recovered/Not Resolved]
  - Feeling abnormal [Unknown]
  - Myalgia [Recovering/Resolving]
  - Upper respiratory tract infection [Recovering/Resolving]
  - Haematocrit decreased [Unknown]
  - Muscle spasms [Unknown]
  - Haemoglobin decreased [Unknown]
  - Pain in extremity [Recovered/Resolved]
  - Treatment noncompliance [Unknown]
  - Product dose omission issue [Not Recovered/Not Resolved]

NARRATIVE: CASE EVENT DATE: 20230101
